FAERS Safety Report 15139589 (Version 4)
Quarter: 2018Q3

REPORT INFORMATION
  Report Type: Report from Study
  Country: US (occurrence: US)
  Receive Date: 20180713
  Receipt Date: 20180828
  Transmission Date: 20181010
  Serious: Yes (Other)
  Sender: FDA-Public Use
  Company Number: US-ASTRAZENECA-2018SE45574

PATIENT
  Sex: Female

DRUGS (2)
  1. AVASTIN [Concomitant]
     Active Substance: BEVACIZUMAB
  2. LYNPARZA [Suspect]
     Active Substance: OLAPARIB
     Indication: OVARIAN CANCER
     Route: 048
     Dates: start: 20180319

REACTIONS (18)
  - Pulmonary mass [Unknown]
  - Gastrooesophageal reflux disease [Unknown]
  - Secondary hypertension [Unknown]
  - Fatigue [Recovering/Resolving]
  - Platelet count decreased [Not Recovered/Not Resolved]
  - Abdominal pain [Unknown]
  - Peritoneal disorder [Unknown]
  - Neuropathy peripheral [Unknown]
  - Vision blurred [Unknown]
  - Vomiting [Unknown]
  - Depression [Unknown]
  - Toxicity to various agents [Not Recovered/Not Resolved]
  - Diarrhoea [Not Recovered/Not Resolved]
  - Rheumatoid arthritis [Unknown]
  - Nausea [Recovering/Resolving]
  - Giardia test positive [Unknown]
  - Back pain [Unknown]
  - Abdominal distension [Not Recovered/Not Resolved]
